FAERS Safety Report 10066519 (Version 2)
Quarter: 2014Q2

REPORT INFORMATION
  Report Type: Spontaneous
  Country: CO (occurrence: CO)
  Receive Date: 20140408
  Receipt Date: 20140414
  Transmission Date: 20141212
  Serious: No
  Sender: FDA-Public Use
  Company Number: PHHY2014CO041869

PATIENT
  Age: 84 Year
  Sex: Male

DRUGS (3)
  1. EXELON PATCH [Suspect]
     Indication: DEMENTIA
     Dosage: 9.5 MG (PATCH 10 CM2; 18MG), UNK
     Route: 062
  2. EXELON PATCH [Suspect]
     Dosage: 13.3 MG (PATCH 15CM2;27MG), DAILY
     Route: 062
     Dates: start: 2012
  3. EXELON PATCH [Suspect]
     Dosage: 9.5 MG (PATCH 10CM2; 18MG), UNK
     Route: 062

REACTIONS (4)
  - Gastrointestinal disorder [Recovered/Resolved]
  - Feeling abnormal [Recovered/Resolved]
  - Vomiting [Recovered/Resolved]
  - Nausea [Recovered/Resolved]
